FAERS Safety Report 19630562 (Version 1)
Quarter: 2021Q3

REPORT INFORMATION
  Report Type: Spontaneous
  Country: US (occurrence: US)
  Receive Date: 20210728
  Receipt Date: 20210728
  Transmission Date: 20211014
  Serious: No
  Sender: FDA-Public Use
  Company Number: US-SA-2021SA242083

PATIENT
  Age: 84 Year
  Sex: Female

DRUGS (1)
  1. XYZAL ALLERGY 24HR [Suspect]
     Active Substance: LEVOCETIRIZINE DIHYDROCHLORIDE
     Indication: HYPERSENSITIVITY
     Dosage: DRUG STRUCTURE DOSAGE : 5 MG DRUG INTERVAL DOSAGE : ONCE DAILY
     Route: 065

REACTIONS (2)
  - Pruritus genital [Unknown]
  - Fungal infection [Not Recovered/Not Resolved]
